FAERS Safety Report 9453348 (Version 1)
Quarter: 2013Q3

REPORT INFORMATION
  Report Type: Spontaneous
  Country: US (occurrence: US)
  Receive Date: 20130812
  Receipt Date: 20130812
  Transmission Date: 20140515
  Serious: Yes (Hospitalization)
  Sender: FDA-Public Use
  Company Number: US-JNJFOC-20130800674

PATIENT
  Sex: Male

DRUGS (10)
  1. ZYTIGA [Suspect]
     Indication: PROSTATE CANCER
     Route: 048
     Dates: start: 20130405, end: 20130425
  2. SIMVASTATIN [Concomitant]
     Route: 065
  3. LISINOPRIL [Concomitant]
     Dosage: DOSE 20
     Route: 065
  4. HYDROCHLOROTHIAZIDE [Concomitant]
     Dosage: DOSE 12.5MG
     Route: 065
  5. FAMOTIDINE [Concomitant]
     Route: 065
  6. ALLOPURINOL [Concomitant]
     Route: 065
  7. PROCHLORPERAZINE [Concomitant]
     Route: 065
  8. GABAPENTIN [Concomitant]
     Route: 065
  9. LORAZEPAM [Concomitant]
     Route: 065
  10. TYLENOL W/ CODEINE NO. 3 [Concomitant]
     Route: 065

REACTIONS (5)
  - Cranial nerve disorder [Unknown]
  - Dyspnoea [Unknown]
  - Disease progression [Unknown]
  - Fatigue [Unknown]
  - Hypoaesthesia [Unknown]
